FAERS Safety Report 5198418-5 (Version None)
Quarter: 2006Q4

REPORT INFORMATION
  Report Type: 
  Country: None (occurrence: None)
  Receive Date: 20061229
  Receipt Date: 20061222
  Transmission Date: 20070319
  Serious: Yes (Hospitalization, Other)
  Sender: FDA-Public Use
  Company Number: 2006PV023144

PATIENT
  Age: 89 Year
  Sex: Male

DRUGS (6)
  1. BYETTA [Suspect]
     Indication: DIABETES MELLITUS NON-INSULIN-DEPENDENT
     Dosage: 5 MCG; BID; SC
     Route: 058
     Dates: start: 20060815
  2. ZYRTEC [Concomitant]
  3. BENADRYL [Concomitant]
  4. BLOOD PRESSURE MEDICATION [Concomitant]
  5. WATER PILL [Concomitant]
  6. DIABETES MEDICATIONS [Concomitant]

REACTIONS (14)
  - AORTIC STENOSIS [None]
  - ASTHENIA [None]
  - BLOOD URINE PRESENT [None]
  - CARDIAC VALVE DISEASE [None]
  - CLOSTRIDIUM DIFFICILE COLITIS [None]
  - DECREASED APPETITE [None]
  - FALL [None]
  - IRON DEFICIENCY ANAEMIA [None]
  - NAUSEA [None]
  - POLLAKIURIA [None]
  - PROSTATE EXAMINATION ABNORMAL [None]
  - TOOTH DISORDER [None]
  - TOOTH INFECTION [None]
  - URINE OUTPUT DECREASED [None]
